FAERS Safety Report 9396016 (Version 1)
Quarter: 2013Q3

REPORT INFORMATION
  Report Type: Spontaneous
  Country: PT (occurrence: PT)
  Receive Date: 20130711
  Receipt Date: 20130711
  Transmission Date: 20140515
  Serious: Yes (Hospitalization)
  Sender: FDA-Public Use
  Company Number: PT-CELGENEUS-130-50794-13064265

PATIENT
  Age: 71 Year
  Sex: Male
  Weight: 89 kg

DRUGS (2)
  1. VIDAZA [Suspect]
     Indication: MYELODYSPLASTIC SYNDROME
     Dosage: 75 MICROGRAM/SQ. METER
     Route: 058
     Dates: start: 20130118
  2. VIDAZA [Suspect]
     Dosage: 75 MICROGRAM/SQ. METER
     Route: 058
     Dates: end: 20130514

REACTIONS (1)
  - Cystitis haemorrhagic [Recovering/Resolving]
